FAERS Safety Report 8599080-1 (Version None)
Quarter: 2012Q3

REPORT INFORMATION
  Report Type: 
  Country: None (occurrence: None)
  Receive Date: 20120803
  Receipt Date: 20120720
  Transmission Date: 20120928
  Serious: Yes (Hospitalization)
  Sender: FDA-Public Use
  Company Number: UTC-021330

PATIENT
  Age: 46 Year
  Sex: Female

DRUGS (3)
  1. ADCIRCA [Concomitant]
  2. REMODULIN [Suspect]
     Indication: PULMONARY ARTERIAL HYPERTENSION
     Dosage: 57.6 UG/KG (0.04 UG/KG, 1 IN 1 MIN), SUBCUTANEOUS
     Route: 058
     Dates: start: 20120328
  3. TRACLEER [Concomitant]

REACTIONS (2)
  - SUBDURAL HAEMORRHAGE [None]
  - FALL [None]
